FAERS Safety Report 18001964 (Version 1)
Quarter: 2020Q3

REPORT INFORMATION
  Report Type: Spontaneous
  Country: CA (occurrence: CA)
  Receive Date: 20200709
  Receipt Date: 20200709
  Transmission Date: 20201103
  Serious: Yes (Life-Threatening)
  Sender: FDA-Public Use
  Company Number: CA-TEVA-2020-CA-1797733

PATIENT
  Age: 3 Year
  Sex: Male
  Weight: 16 kg

DRUGS (25)
  1. BUSULFAN. [Suspect]
     Active Substance: BUSULFAN
     Indication: CHRONIC GRANULOMATOUS DISEASE
     Route: 042
  2. ACETAMINOPHEN. [Concomitant]
     Active Substance: ACETAMINOPHEN
  3. ACYCLOVIR. [Concomitant]
     Active Substance: ACYCLOVIR
  4. METHYLPREDNISOLONE NOS [Concomitant]
     Active Substance: METHYLPREDNISOLONE
  5. CHOLECALCIFEROL [Concomitant]
     Active Substance: CHOLECALCIFEROL
  6. CYCLOSPORINE. [Concomitant]
     Active Substance: CYCLOSPORINE
  7. DEXAMETHASONE. [Concomitant]
     Active Substance: DEXAMETHASONE
  8. DIPHENHYDRAMINE. [Concomitant]
     Active Substance: DIPHENHYDRAMINE
  9. FUROSEMIDE. [Concomitant]
     Active Substance: FUROSEMIDE
  10. LEVETIRACETAM. [Concomitant]
     Active Substance: LEVETIRACETAM
  11. ANTI?THYMOCYTE GLOBULIN (RABBIT) NOS [Concomitant]
     Active Substance: LAPINE T-LYMPHOCYTE IMMUNE GLOBULIN
  12. BUSULFAN. [Suspect]
     Active Substance: BUSULFAN
     Route: 042
  13. CEFTAZIDIME. [Concomitant]
     Active Substance: CEFTAZIDIME
  14. FLUCONAZOLE. [Concomitant]
     Active Substance: FLUCONAZOLE
  15. LORAZEPAM. [Concomitant]
     Active Substance: LORAZEPAM
  16. ALTEPLASE. [Concomitant]
     Active Substance: ALTEPLASE
  17. DIMENHYDRINATE. [Concomitant]
     Active Substance: DIMENHYDRINATE
  18. HYDROCORTISONE. [Concomitant]
     Active Substance: HYDROCORTISONE
  19. METOCLOPRAMIDE. [Concomitant]
     Active Substance: METOCLOPRAMIDE
  20. FLUDARABINE [Suspect]
     Active Substance: FLUDARABINE PHOSPHATE
     Route: 042
  21. BUSULFAN. [Suspect]
     Active Substance: BUSULFAN
     Route: 042
  22. AMLODIPINE [Concomitant]
     Active Substance: AMLODIPINE BESYLATE
  23. EPINEPHRINE. [Concomitant]
     Active Substance: EPINEPHRINE
  24. MAGNESIUM [Concomitant]
     Active Substance: MAGNESIUM
  25. FLUDARABINE [Suspect]
     Active Substance: FLUDARABINE PHOSPHATE
     Indication: CHRONIC GRANULOMATOUS DISEASE
     Route: 042

REACTIONS (3)
  - Febrile neutropenia [Unknown]
  - Aplastic anaemia [Unknown]
  - Mucosal inflammation [Unknown]
